FAERS Safety Report 10993754 (Version 2)
Quarter: 2015Q2

REPORT INFORMATION
  Report Type: Spontaneous
  Country: US (occurrence: US)
  Receive Date: 20150407
  Receipt Date: 20150427
  Transmission Date: 20150821
  Serious: Yes (Other)
  Sender: FDA-Public Use
  Company Number: US-ASTRAZENECA-2015SE31895

PATIENT
  Age: 52 Year
  Sex: Female
  Weight: 89 kg

DRUGS (6)
  1. VENTOLIN [Concomitant]
     Active Substance: ALBUTEROL SULFATE
     Dosage: UNK
  2. XANAX [Concomitant]
     Active Substance: ALPRAZOLAM
  3. NEXIUM [Suspect]
     Active Substance: ESOMEPRAZOLE MAGNESIUM
     Dosage: UNK, 1X/DAY
     Route: 048
  4. NEXIUM 24HR [Suspect]
     Active Substance: ESOMEPRAZOLE MAGNESIUM
     Route: 048
     Dates: start: 201409
  5. BIOTENE (PASTE) [Concomitant]
     Active Substance: SODIUM MONOFLUOROPHOSPHATE
     Indication: ORAL DISORDER
     Dosage: UNK
  6. FIORICET [Concomitant]
     Active Substance: ACETAMINOPHEN\BUTALBITAL\CAFFEINE
     Indication: ILL-DEFINED DISORDER
     Dosage: UNK

REACTIONS (12)
  - Swollen tongue [Unknown]
  - Drug ineffective [Unknown]
  - Lip disorder [Unknown]
  - Dyspepsia [Unknown]
  - Lip swelling [Unknown]
  - Lymphadenopathy [Unknown]
  - Gastric disorder [Unknown]
  - Hypersensitivity [Not Recovered/Not Resolved]
  - Throat tightness [Unknown]
  - Gingival disorder [Unknown]
  - Drug dose omission [Unknown]
  - Anaphylactic shock [Unknown]

NARRATIVE: CASE EVENT DATE: 201409
